FAERS Safety Report 9269380 (Version 1)
Quarter: 2013Q2

REPORT INFORMATION
  Report Type: Report from Study
  Country: US (occurrence: US)
  Receive Date: 20130503
  Receipt Date: 20130503
  Transmission Date: 20140414
  Serious: Yes (Other)
  Sender: FDA-Public Use
  Company Number: PHEH2013US009765

PATIENT
  Sex: Female

DRUGS (14)
  1. ZOMETA [Suspect]
     Indication: PLASMA CELL MYELOMA
     Dosage: UNK UKN, UNK
  2. ANTIVERT [Concomitant]
     Dosage: UNK UKN, UNK
  3. BENADRYL [Concomitant]
     Dosage: UNK UKN, UNK
  4. QUINAPRIL [Concomitant]
     Dosage: UNK UKN, UNK
  5. CHOLESTYRAMINE [Concomitant]
     Dosage: UNK UKN, UNK
  6. FELODIPINE [Concomitant]
     Dosage: UNK UKN, UNK
  7. POTASSIUM [Concomitant]
     Dosage: UNK UKN, UNK
  8. GABAPENTIN [Concomitant]
     Dosage: UNK UKN, UNK
  9. OXYCONTIN [Concomitant]
     Dosage: UNK UKN, UNK
  10. LIPITOR [Concomitant]
     Dosage: UNK UKN, UNK
  11. REVLIMID [Concomitant]
     Dosage: UNK UKN, UNK
  12. VELCADE [Concomitant]
     Dosage: UNK UKN, UNK
  13. VITAMIN D [Concomitant]
     Dosage: UNK UKN, UNK
  14. TOPROL XL [Concomitant]
     Dosage: UNK UKN, UNK

REACTIONS (1)
  - Rotator cuff syndrome [Unknown]
